FAERS Safety Report 4948707-1 (Version None)
Quarter: 2006Q1

REPORT INFORMATION
  Report Type: 
  Country: None (occurrence: None)
  Receive Date: 20060313
  Receipt Date: 20060301
  Transmission Date: 20060701
  Serious: Yes (Disabling)
  Sender: FDA-Public Use
  Company Number: 06H-208-0306046-00

PATIENT
  Age: 35 Year
  Sex: Female

DRUGS (3)
  1. POTASSIUM CHLORIDE [Suspect]
     Dosage: 15 ML, EPIDURAL
     Route: 008
  2. MORPHINE [Concomitant]
  3. 0.125% EPUVACAINE (BUPIVACAINE) [Concomitant]

REACTIONS (14)
  - ANALGESIC EFFECT [None]
  - CONFUSIONAL STATE [None]
  - DYSPNOEA [None]
  - FAECAL INCONTINENCE [None]
  - LOSS OF CONSCIOUSNESS [None]
  - MEDICATION ERROR [None]
  - MUSCLE TWITCHING [None]
  - MYDRIASIS [None]
  - PAIN IN EXTREMITY [None]
  - PARAPLEGIA [None]
  - PUPIL FIXED [None]
  - RESPIRATORY PARALYSIS [None]
  - URINARY INCONTINENCE [None]
  - WRONG TECHNIQUE IN DRUG USAGE PROCESS [None]
